FAERS Safety Report 8887601 (Version 1)
Quarter: 2012Q4

REPORT INFORMATION
  Report Type: Spontaneous
  Country: US (occurrence: None)
  Receive Date: 20121101
  Receipt Date: 20121101
  Transmission Date: 20130627
  Serious: Yes (Other)
  Sender: FDA-Public Use
  Company Number: None

PATIENT
  Age: 24 Year
  Sex: Male
  Weight: 57.61 kg

DRUGS (2)
  1. PENICILLIN VK [Suspect]
     Indication: DENTAL ABSCESS
     Dosage: 1 tab
     Route: 048
     Dates: start: 20121017, end: 20121019
  2. CITALOPRAM [Suspect]
     Indication: ANXIETY
     Dosage: 1 tab
     Route: 048
     Dates: start: 20120830, end: 20121029

REACTIONS (3)
  - Suicidal ideation [None]
  - Tooth abscess [None]
  - Drug interaction [None]
